FAERS Safety Report 4509085-5 (Version None)
Quarter: 2004Q4

REPORT INFORMATION
  Report Type: 
  Country: None (occurrence: None)
  Receive Date: 20041025
  Receipt Date: 20040723
  Transmission Date: 20050328
  Serious: Yes (Other)
  Sender: FDA-Public Use
  Company Number: US-JNJFOC-20040706460

PATIENT
  Age: 41 Year
  Sex: Female

DRUGS (4)
  1. INFLIXIMAB (INFLIXIMAB, RECOMBINANT) LYOPHILIZED POWDER [Suspect]
     Indication: RHEUMATOID ARTHRITIS
     Dosage: INTRAVENOUS
     Route: 042
     Dates: start: 20010612
  2. CELEBREXA (CELECOXIB) [Concomitant]
  3. SYNTHROID [Concomitant]
  4. ADVIL [Concomitant]

REACTIONS (1)
  - INFUSION RELATED REACTION [None]
